FAERS Safety Report 4432801-8 (Version None)
Quarter: 2004Q3

REPORT INFORMATION
  Report Type: 
  Country: None (occurrence: None)
  Receive Date: 20040823
  Receipt Date: 20040812
  Transmission Date: 20050211
  Serious: Yes (Other)
  Sender: FDA-Public Use
  Company Number: 2004225561JP

PATIENT
  Age: 57 Year
  Sex: Female

DRUGS (8)
  1. FRAGMIN [Suspect]
     Indication: HAEMODIALYSIS
     Dosage: 1000 U. DAILY,  IV
     Route: 042
     Dates: start: 20040726
  2. NORVASC [Concomitant]
  3. EXCELASE (ENZYMES NOS) [Concomitant]
  4. OMEPRAL [Concomitant]
  5. TOMIRON (CEFTERAM PIVOXIL) [Concomitant]
  6. HALCION [Concomitant]
  7. ATARAX [Concomitant]
  8. PURSENNID (SENNA LEAF) [Concomitant]

REACTIONS (2)
  - EXANTHEM [None]
  - SHOCK [None]
